FAERS Safety Report 6975817-X (Version None)
Quarter: 2010Q3

REPORT INFORMATION
  Report Type: 
  Country: None (occurrence: None)
  Receive Date: 20100910
  Receipt Date: 20100902
  Transmission Date: 20110219
  Serious: Yes (Hospitalization)
  Sender: FDA-Public Use
  Company Number: US-ELI_LILLY_AND_COMPANY-US201009001425

PATIENT
  Sex: Female

DRUGS (4)
  1. HUMULIN N [Suspect]
     Indication: TYPE 2 DIABETES MELLITUS
     Dosage: 38 U, EACH MORNING
  2. HUMULIN N [Suspect]
     Dosage: 18 U, EACH EVENING
  3. HUMULIN N [Suspect]
     Dosage: 38 U, EACH MORNING
  4. HUMULIN N [Suspect]
     Dosage: 18 U, EACH EVENING

REACTIONS (4)
  - BLOOD GLUCOSE INCREASED [None]
  - COUGH [None]
  - DRUG INEFFECTIVE [None]
  - TREMOR [None]
